FAERS Safety Report 6619489-2 (Version None)
Quarter: 2010Q1

REPORT INFORMATION
  Report Type: 
  Country: None (occurrence: None)
  Receive Date: 20100303
  Receipt Date: 20100218
  Transmission Date: 20100710
  Serious: Yes (Other)
  Sender: FDA-Public Use
  Company Number: ALL1-2010-01032

PATIENT
  Age: 70 Year
  Sex: Female
  Weight: 27.9 kg

DRUGS (5)
  1. FOSRENOL [Suspect]
     Indication: HYPERPHOSPHATAEMIA
     Dosage: 1000 MG 5 TO 6 TIMIES A DAILY WITH MEALS, ORALQ
     Route: 048
     Dates: start: 20091101
  2. LOMOTIL [Concomitant]
  3. HIGH BLOOD PRESSURE MEDICINE [Concomitant]
  4. LEVODOPA (LEVODOPA) [Concomitant]
  5. THYROID MEDICATION [Concomitant]

REACTIONS (8)
  - CONDITION AGGRAVATED [None]
  - DIALYSIS [None]
  - DIARRHOEA [None]
  - FLATULENCE [None]
  - FLUID OVERLOAD [None]
  - HYPOTENSION [None]
  - IRRITABLE BOWEL SYNDROME [None]
  - MUSCLE SPASMS [None]
